FAERS Safety Report 6999440-6 (Version None)
Quarter: 2010Q3

REPORT INFORMATION
  Report Type: 
  Country: None (occurrence: None)
  Receive Date: 20100920
  Receipt Date: 20100205
  Transmission Date: 20110219
  Serious: Yes (Hospitalization)
  Sender: FDA-Public Use
  Company Number: JP-SANOFI-AVENTIS-2010SA007449

PATIENT
  Age: 88 Year
  Sex: Male
  Weight: 58.8 kg

DRUGS (9)
  1. BLINDED THERAPY [Suspect]
     Indication: ANGINA PECTORIS
     Route: 048
     Dates: start: 20090205, end: 20090429
  2. BLINDED THERAPY [Suspect]
     Route: 048
     Dates: start: 20090205, end: 20090429
  3. CLOPIDOGREL BISULFATE [Suspect]
     Indication: ANGINA PECTORIS
     Route: 048
     Dates: start: 20090501, end: 20100204
  4. CLOPIDOGREL BISULFATE [Suspect]
     Route: 048
     Dates: start: 20090501, end: 20100204
  5. ASPIRIN [Concomitant]
     Indication: ANGINA PECTORIS
     Route: 048
     Dates: start: 20090128
  6. SIGMART [Concomitant]
     Indication: ANGINA PECTORIS
     Route: 048
     Dates: start: 20090128
  7. AZULENE SODIUM SULFONATE [Concomitant]
     Indication: CATARACT
     Route: 047
     Dates: start: 19820101
  8. KARY UNI [Concomitant]
     Indication: CATARACT
     Route: 047
     Dates: start: 19820101
  9. OPALMON [Concomitant]
     Route: 048
     Dates: start: 20100101

REACTIONS (2)
  - EMPHYSEMA [None]
  - LUNG NEOPLASM MALIGNANT [None]
